FAERS Safety Report 4363713-6 (Version None)
Quarter: 2004Q2

REPORT INFORMATION
  Report Type: 
  Country: None (occurrence: None)
  Receive Date: 20040524
  Receipt Date: 20040510
  Transmission Date: 20050107
  Serious: Yes (Hospitalization, Disabling)
  Sender: FDA-Public Use
  Company Number: US-ROCHE-367431

PATIENT
  Sex: Male

DRUGS (1)
  1. FUZEON [Suspect]
     Indication: DRUG USE FOR UNKNOWN INDICATION
     Route: 065
     Dates: start: 20040115, end: 20040515

REACTIONS (4)
  - BACTERIAL INFECTION [None]
  - CATHETER RELATED COMPLICATION [None]
  - INJECTION SITE URTICARIA [None]
  - THROMBOSIS [None]
